FAERS Safety Report 15481912 (Version 1)
Quarter: 2018Q4

REPORT INFORMATION
  Report Type: Spontaneous
  Country: US (occurrence: US)
  Receive Date: 20181003
  Receipt Date: 20181003
  Transmission Date: 20190205
  Serious: Yes (Death, Hospitalization)
  Sender: FDA-Public Use
  Company Number: None

PATIENT
  Age: 18 Year
  Weight: 80.6 kg

DRUGS (6)
  1. ONCASPAR [Suspect]
     Active Substance: PEGASPARGASE
     Dates: end: 20180823
  2. PREDNISONE. [Suspect]
     Active Substance: PREDNISONE
     Dates: end: 20180911
  3. VINCRISTINE SULFATE. [Suspect]
     Active Substance: VINCRISTINE SULFATE
     Dates: end: 20180913
  4. DAUNORUBICIN [Suspect]
     Active Substance: DAUNORUBICIN
     Dates: end: 20180913
  5. METHOTREXATE. [Suspect]
     Active Substance: METHOTREXATE
     Dates: end: 20180920
  6. CYTARABINE. [Suspect]
     Active Substance: CYTARABINE
     Dates: end: 20180820

REACTIONS (11)
  - Treatment failure [None]
  - Sinusitis fungal [None]
  - Haemodialysis [None]
  - Blood pressure decreased [None]
  - Pancreatitis acute [None]
  - Acute kidney injury [None]
  - Bacteraemia [None]
  - Pneumonia [None]
  - Pancytopenia [None]
  - Coagulopathy [None]
  - Heart rate decreased [None]

NARRATIVE: CASE EVENT DATE: 20180916
